FAERS Safety Report 25090191 (Version 1)
Quarter: 2025Q1

REPORT INFORMATION
  Report Type: Spontaneous
  Country: US (occurrence: None)
  Receive Date: 20250317
  Receipt Date: 20250317
  Transmission Date: 20250409
  Serious: Yes (Other)
  Sender: FDA-CTU
  Company Number: None

PATIENT
  Age: 48 Year
  Sex: Female

DRUGS (1)
  1. SILDENAFIL [Suspect]
     Active Substance: SILDENAFIL
     Dates: start: 20240521, end: 20250317

REACTIONS (2)
  - Vasodilatation [None]
  - Fluid retention [None]

NARRATIVE: CASE EVENT DATE: 20250304
